FAERS Safety Report 5365122-X (Version None)
Quarter: 2007Q2

REPORT INFORMATION
  Report Type: 
  Country: None (occurrence: None)
  Receive Date: 20070530
  Receipt Date: 20070318
  Transmission Date: 20071010
  Serious: No
  Sender: FDA-Public Use
  Company Number: 2006PV015998

PATIENT
  Age: 60 Year
  Sex: Female
  Weight: 131.5431 kg

DRUGS (3)
  1. BYETTA [Suspect]
     Indication: DIABETES MELLITUS NON-INSULIN-DEPENDENT
     Dosage: SC, 10 MCG;BID;SC, 5 MCG;BID;SC
     Route: 058
     Dates: start: 20060301, end: 20060401
  2. BYETTA [Suspect]
     Indication: DIABETES MELLITUS NON-INSULIN-DEPENDENT
     Dosage: SC, 10 MCG;BID;SC, 5 MCG;BID;SC
     Route: 058
     Dates: start: 20060401
  3. ... [Suspect]

REACTIONS (8)
  - CHILLS [None]
  - DECREASED APPETITE [None]
  - DYSPEPSIA [None]
  - FATIGUE [None]
  - NAUSEA [None]
  - OVERDOSE [None]
  - VOMITING [None]
  - WEIGHT DECREASED [None]
